FAERS Safety Report 19152520 (Version 1)
Quarter: 2021Q2

REPORT INFORMATION
  Report Type: Spontaneous
  Country: US (occurrence: US)
  Receive Date: 20210416
  Receipt Date: 20210416
  Transmission Date: 20210717
  Serious: Yes (Life-Threatening, Other)
  Sender: FDA-Public Use
  Company Number: None

PATIENT
  Age: 62 Year
  Sex: Male
  Weight: 82.8 kg

DRUGS (4)
  1. DEXAMETHASONE. [Concomitant]
     Active Substance: DEXAMETHASONE
     Dates: start: 20210331, end: 20210404
  2. REMDESIVIR. [Concomitant]
     Active Substance: REMDESIVIR
     Dates: start: 20210320, end: 20210324
  3. DEXAMETHASONE. [Concomitant]
     Active Substance: DEXAMETHASONE
     Dates: start: 20210320, end: 20210329
  4. TOCILIZUMAB. [Suspect]
     Active Substance: TOCILIZUMAB
     Indication: COVID-19 TREATMENT
     Dosage: ?          OTHER FREQUENCY:ONCE;?
     Route: 040

REACTIONS (20)
  - Melaena [None]
  - Haemorrhage [None]
  - Upper gastrointestinal haemorrhage [None]
  - Stress ulcer [None]
  - Hepatic cirrhosis [None]
  - Gastrointestinal angiodysplasia [None]
  - Infection [None]
  - Faeces discoloured [None]
  - Colitis [None]
  - Platelet count decreased [None]
  - Antimitochondrial antibody positive [None]
  - Haematochezia [None]
  - Hypovolaemia [None]
  - Gastritis erosive [None]
  - Haemorrhoids [None]
  - Hypophagia [None]
  - Blood fibrinogen increased [None]
  - Portal hypertension [None]
  - Hypotension [None]
  - Haemoglobin decreased [None]

NARRATIVE: CASE EVENT DATE: 20210411
